FAERS Safety Report 21649186 (Version 1)
Quarter: 2022Q4

REPORT INFORMATION
  Report Type: Spontaneous
  Country: FR (occurrence: FR)
  Receive Date: 20221128
  Receipt Date: 20221128
  Transmission Date: 20230113
  Serious: Yes (Other)
  Sender: FDA-Public Use
  Company Number: FR-PFIZER INC-PV202200103267

PATIENT
  Age: 14 Year
  Sex: Female
  Weight: 86 kg

DRUGS (3)
  1. TRAMETINIB [Suspect]
     Active Substance: TRAMETINIB
     Indication: Neuroblastoma
     Dosage: 2 MG, QD (2 MG, DAILY)
     Route: 065
     Dates: start: 20220818, end: 20221012
  2. LORLATINIB [Suspect]
     Active Substance: LORLATINIB
     Indication: Neuroblastoma
     Dosage: 100 MG, QD (100 MG, DAILY)
     Route: 065
     Dates: start: 20191213
  3. LORLATINIB [Suspect]
     Active Substance: LORLATINIB
     Dosage: 100 MG, QD (100 MG, DAILY)
     Route: 065
     Dates: start: 20210128

REACTIONS (9)
  - Thrombocytopenia [Unknown]
  - Anaemia [Unknown]
  - Off label use [Unknown]
  - Neoplasm progression [Unknown]
  - Conjunctival hyperaemia [Unknown]
  - Rash [Unknown]
  - Anger [Unknown]
  - Dermatitis acneiform [Unknown]
  - Fatigue [Unknown]

NARRATIVE: CASE EVENT DATE: 20191213
